FAERS Safety Report 5011358-7 (Version None)
Quarter: 2006Q2

REPORT INFORMATION
  Report Type: 
  Country: None (occurrence: None)
  Receive Date: 20060404
  Receipt Date: 20051107
  Transmission Date: 20061013
  Serious: No
  Sender: FDA-Public Use
  Company Number: USA0510110804

PATIENT
  Age: 80 Year
  Sex: Female
  Weight: 72 kg

DRUGS (8)
  1. CYMBALTA [Suspect]
     Indication: DIABETIC NEUROPATHY
     Dates: start: 20050906, end: 20051004
  2. METHADONE HCL [Concomitant]
  3. AMARYL [Concomitant]
  4. BUMEX [Concomitant]
  5. NEXIUM [Concomitant]
  6. ALDACTONE [Concomitant]
  7. PREDNISONE TAB [Concomitant]
  8. CARDIZEM [Concomitant]

REACTIONS (3)
  - HALLUCINATION [None]
  - NIGHTMARE [None]
  - PSYCHOTIC DISORDER [None]
